FAERS Safety Report 10045378 (Version 2)
Quarter: 2014Q2

REPORT INFORMATION
  Report Type: Report from Study
  Country: US (occurrence: US)
  Receive Date: 20140328
  Receipt Date: 20140404
  Transmission Date: 20141212
  Serious: Yes (Hospitalization)
  Sender: FDA-Public Use
  Company Number: US-US-EMD SERONO, INC.-7277894

PATIENT
  Age: 8 Year
  Sex: Male

DRUGS (2)
  1. REBIF [Suspect]
     Indication: MULTIPLE SCLEROSIS
     Route: 058
     Dates: start: 20090924
  2. REBIF [Suspect]
     Route: 058
     Dates: start: 201011, end: 201102

REACTIONS (1)
  - Multiple sclerosis relapse [Recovered/Resolved]
